FAERS Safety Report 13284789 (Version 2)
Quarter: 2017Q3

REPORT INFORMATION
  Report Type: Spontaneous
  Country: GB (occurrence: GB)
  Receive Date: 20170301
  Receipt Date: 20170712
  Transmission Date: 20171127
  Serious: Yes (Hospitalization, Other)
  Sender: FDA-Public Use
  Company Number: GB-BRISTOL-MYERS SQUIBB COMPANY-BMS-2017-015802

PATIENT
  Age: 68 Year
  Sex: Male

DRUGS (2)
  1. IPILIMUMAB [Suspect]
     Active Substance: IPILIMUMAB
     Indication: METASTATIC MALIGNANT MELANOMA
     Dosage: 3 MG/KG, UNK
     Route: 065
  2. NIVOLUMAB [Suspect]
     Active Substance: NIVOLUMAB
     Indication: METASTATIC MALIGNANT MELANOMA
     Dosage: 1 MG/KG, UNK
     Route: 065

REACTIONS (4)
  - Rash [Unknown]
  - Sciatica [Recovered/Resolved]
  - Malignant neoplasm progression [Unknown]
  - Hepatitis [Recovered/Resolved]
